FAERS Safety Report 14891839 (Version 1)
Quarter: 2018Q2

REPORT INFORMATION
  Report Type: Spontaneous
  Country: US (occurrence: US)
  Receive Date: 20180426
  Receipt Date: 20180426
  Transmission Date: 20180711
  Serious: Yes (Disabling, Other)
  Sender: FDA-Public Use
  Company Number: None

PATIENT
  Age: 1 Year
  Sex: Male
  Weight: 9.9 kg

DRUGS (8)
  1. BENADRYL [Concomitant]
     Active Substance: DIPHENHYDRAMINE HYDROCHLORIDE
  2. DHA DROPS [Concomitant]
  3. FLUOCINOLONE ACETONIDE. [Suspect]
     Active Substance: FLUOCINOLONE ACETONIDE
     Indication: ECZEMA
     Route: 061
     Dates: start: 20171101, end: 20180413
  4. CLARITIN [Concomitant]
     Active Substance: LORATADINE
  5. COLLOIDAL SILVER [Concomitant]
     Active Substance: SILVER
  6. ELIDEL [Suspect]
     Active Substance: PIMECROLIMUS
     Indication: ECZEMA
     Route: 061
     Dates: start: 20171127, end: 20180413
  7. PROBIOTICS [Concomitant]
     Active Substance: PROBIOTICS NOS
  8. VITAMIN D3 [Concomitant]
     Active Substance: CHOLECALCIFEROL

REACTIONS (13)
  - Skin exfoliation [None]
  - Burning sensation [None]
  - Drug ineffective [None]
  - Secretion discharge [None]
  - Drug tolerance [None]
  - Feeling abnormal [None]
  - Swelling [None]
  - Rebound eczema [None]
  - Pruritus [None]
  - Haemorrhage [None]
  - Erythema [None]
  - Insomnia [None]
  - Steroid withdrawal syndrome [None]

NARRATIVE: CASE EVENT DATE: 20180327
